FAERS Safety Report 5742393-9 (Version None)
Quarter: 2008Q2

REPORT INFORMATION
  Report Type: 
  Country: None (occurrence: None)
  Receive Date: 20080514
  Receipt Date: 20080514
  Transmission Date: 20081010
  Serious: Yes (Hospitalization)
  Sender: FDA-Public Use
  Company Number: None

PATIENT
  Age: 19 Year
  Sex: Male
  Weight: 59.5 kg

DRUGS (1)
  1. SULFAMETHOXAZOLE AND TRIMETHOPRIM [Suspect]
     Indication: OTITIS MEDIA
     Dosage: BID PO
     Route: 048
     Dates: start: 20080203, end: 20080207

REACTIONS (4)
  - ABDOMINAL PAIN [None]
  - NAUSEA [None]
  - RASH GENERALISED [None]
  - VOMITING [None]
